FAERS Safety Report 4836611-9 (Version None)
Quarter: 2005Q4

REPORT INFORMATION
  Report Type: 
  Country: None (occurrence: None)
  Receive Date: 20051121
  Receipt Date: 20051109
  Transmission Date: 20060501
  Serious: Yes (Hospitalization)
  Sender: FDA-Public Use
  Company Number: HQWYE618322JUN05

PATIENT
  Age: 50 Year
  Sex: Male
  Weight: 127.8 kg

DRUGS (1)
  1. CYCLOSPORINE, CONTROL FOR SIROLIMUS (CYCLOSPORINE, CONTROL FOR SIROLIM [Suspect]
     Indication: PROPHYLAXIS AGAINST TRANSPLANT REJECTION
     Dosage: 50 MG 2X PER 1 DAY, ORAL
     Route: 048
     Dates: start: 20020405, end: 20050613

REACTIONS (7)
  - CELLULITIS [None]
  - CHILLS [None]
  - DISEASE RECURRENCE [None]
  - HERNIA [None]
  - NECROTISING FASCIITIS [None]
  - PYREXIA [None]
  - WHITE BLOOD CELL COUNT INCREASED [None]
